FAERS Safety Report 10994460 (Version 1)
Quarter: 2015Q2

REPORT INFORMATION
  Report Type: Spontaneous
  Country: US (occurrence: None)
  Receive Date: 20150406
  Receipt Date: 20150406
  Transmission Date: 20150821
  Serious: No
  Sender: FDA-Public Use
  Company Number: None

PATIENT
  Age: 75 Year
  Sex: Female

DRUGS (1)
  1. CAPECITABINE 500 MG [Suspect]
     Active Substance: CAPECITABINE
     Dosage: 2 TABS
     Route: 048

REACTIONS (2)
  - Malaise [None]
  - Drug intolerance [None]

NARRATIVE: CASE EVENT DATE: 20150318
